FAERS Safety Report 14335541 (Version 1)
Quarter: 2017Q4

REPORT INFORMATION
  Report Type: Spontaneous
  Country: US (occurrence: US)
  Receive Date: 20171229
  Receipt Date: 20171229
  Transmission Date: 20180321
  Serious: No
  Sender: FDA-Public Use
  Company Number: US-INCYTE CORPORATION-2017IN011033

PATIENT

DRUGS (4)
  1. LEVOTHYROXINE SODIUM STAT RX [Concomitant]
     Indication: PRODUCT USED FOR UNKNOWN INDICATION
  2. JAKAFI [Suspect]
     Active Substance: RUXOLITINIB
     Indication: ESSENTIAL THROMBOCYTHAEMIA
     Dosage: 25 MG, BID
     Route: 048
     Dates: start: 20171124
  3. CROMOLYN SODIUM. [Concomitant]
     Active Substance: CROMOLYN SODIUM
     Indication: PRODUCT USED FOR UNKNOWN INDICATION
  4. ASPIRIN                            /00002701/ [Concomitant]
     Active Substance: ASPIRIN
     Indication: PRODUCT USED FOR UNKNOWN INDICATION

REACTIONS (9)
  - Loss of personal independence in daily activities [Unknown]
  - Off label use [Unknown]
  - Sleep disorder [Unknown]
  - Chills [Unknown]
  - Somnolence [Unknown]
  - Bradyphrenia [Unknown]
  - Influenza [Unknown]
  - Abdominal distension [Unknown]
  - Depression [Unknown]

NARRATIVE: CASE EVENT DATE: 20171124
